FAERS Safety Report 23656869 (Version 1)
Quarter: 2024Q1

REPORT INFORMATION
  Report Type: Spontaneous
  Country: US (occurrence: US)
  Receive Date: 20240321
  Receipt Date: 20240321
  Transmission Date: 20240410
  Serious: No
  Sender: FDA-Public Use
  Company Number: US-TEVA-VS-3139542

PATIENT
  Age: 79 Year
  Sex: Male

DRUGS (1)
  1. ALBUTEROL SULFATE [Suspect]
     Active Substance: ALBUTEROL SULFATE
     Indication: Dyspnoea
     Dosage: TIME INTERVAL: AS NECESSARY: 90 MCG/DOSE, 2 PUFFS BY MOUTH FOUR TIMES A DAY WHEN NEEDED
     Route: 048

REACTIONS (1)
  - Weight decreased [Unknown]
